FAERS Safety Report 14067059 (Version 1)
Quarter: 2017Q4

REPORT INFORMATION
  Report Type: Spontaneous
  Country: US (occurrence: US)
  Receive Date: 20171008
  Receipt Date: 20171008
  Transmission Date: 20180321
  Serious: No
  Sender: FDA-Public Use
  Company Number: None

PATIENT
  Age: 40 Year
  Sex: Female
  Weight: 135 kg

DRUGS (1)
  1. BUTRANS [Suspect]
     Active Substance: BUPRENORPHINE
     Indication: FIBROMYALGIA
     Dosage: QUANTITY:1 PATCH(ES);OTHER FREQUENCY:1/ WEEK;?
     Route: 062
     Dates: start: 20140510, end: 20171004

REACTIONS (7)
  - Withdrawal syndrome [None]
  - Hyperhidrosis [None]
  - Chills [None]
  - Nausea [None]
  - Pain [None]
  - Diarrhoea [None]
  - Dyspnoea [None]

NARRATIVE: CASE EVENT DATE: 20171004
